FAERS Safety Report 8368248-1 (Version None)
Quarter: 2012Q2

REPORT INFORMATION
  Report Type: 
  Country: None (occurrence: None)
  Receive Date: 20120517
  Receipt Date: 20120509
  Transmission Date: 20120825
  Serious: Yes (Hospitalization)
  Sender: FDA-Public Use
  Company Number: FI-MERCK-1205USA02067

PATIENT
  Age: 67 Year
  Sex: Female

DRUGS (4)
  1. TERIPARATIDE [Concomitant]
     Route: 065
  2. FOSAMAX PLUS D [Suspect]
     Indication: OSTEOPOROSIS
     Route: 048
     Dates: start: 20000101, end: 20101201
  3. PREDNISOLONE [Suspect]
     Indication: ASTHMA
     Dosage: 5-10MG DAILY
     Route: 048
  4. PREDNISOLONE [Suspect]
     Indication: RHEUMATOID ARTHRITIS
     Dosage: 5-10MG DAILY
     Route: 048

REACTIONS (3)
  - BONE PAIN [None]
  - FEMUR FRACTURE [None]
  - BONE DISORDER [None]
